FAERS Safety Report 4480644-1 (Version None)
Quarter: 2004Q4

REPORT INFORMATION
  Report Type: 
  Country: None (occurrence: None)
  Receive Date: 20041019
  Receipt Date: 20041001
  Transmission Date: 20050328
  Serious: Yes (Death)
  Sender: FDA-Public Use
  Company Number: DSA_70490_2004

PATIENT
  Age: 68 Year

DRUGS (3)
  1. MORPHINE [Suspect]
     Dosage: DF PO
     Route: 048
  2. ACETAMINOPHEN [Suspect]
     Dosage: DF
  3. HYDROCODONE [Suspect]
     Dosage: DF

REACTIONS (1)
  - MULTIPLE DRUG OVERDOSE [None]
